FAERS Safety Report 8578609-3 (Version None)
Quarter: 2012Q3

REPORT INFORMATION
  Report Type: 
  Country: None (occurrence: None)
  Receive Date: 20120808
  Receipt Date: 20120730
  Transmission Date: 20120928
  Serious: Yes (Death)
  Sender: FDA-Public Use
  Company Number: US-SANOFI-AVENTIS-2012SA054888

PATIENT
  Age: 67 Year
  Sex: Male
  Weight: 89 kg

DRUGS (10)
  1. LASIX [Suspect]
     Indication: HYPERTENSION
     Route: 065
     Dates: end: 20111105
  2. POTASSIUM CHLORIDE [Suspect]
     Indication: SUPPLEMENTATION THERAPY
     Route: 065
     Dates: end: 20111105
  3. COREG [Suspect]
     Indication: HYPERTENSION
     Dates: end: 20111010
  4. INVESTIGATIONAL DRUG [Concomitant]
     Indication: NON-SMALL CELL LUNG CANCER
     Dates: start: 20110603, end: 20111024
  5. ZETIA [Suspect]
     Route: 065
     Dates: end: 20111105
  6. BENZONATATE [Suspect]
     Indication: COUGH
     Route: 065
     Dates: end: 20111105
  7. LEVOTHYROXINE SODIUM [Suspect]
     Indication: HYPOTHYROIDISM
     Dates: end: 20111105
  8. ASPIRIN [Suspect]
     Indication: CARDIOVASCULAR EVENT PROPHYLAXIS
     Route: 065
     Dates: end: 20111105
  9. FLUZONE [Suspect]
     Indication: INFLUENZA IMMUNISATION
     Route: 065
     Dates: start: 20111005, end: 20111005
  10. ZOCOR [Suspect]
     Route: 065
     Dates: end: 20111105

REACTIONS (1)
  - DEATH [None]
